FAERS Safety Report 16596545 (Version 2)
Quarter: 2019Q3

REPORT INFORMATION
  Report Type: Spontaneous
  Country: PK (occurrence: PK)
  Receive Date: 20190719
  Receipt Date: 20190729
  Transmission Date: 20191004
  Serious: Yes (Hospitalization)
  Sender: FDA-Public Use
  Company Number: PK-GLAXOSMITHKLINE-PK2019128794

PATIENT
  Age: 71 Year
  Sex: Female
  Weight: 65 kg

DRUGS (2)
  1. VITAMIN D3 [Concomitant]
     Active Substance: CHOLECALCIFEROL
     Indication: PRODUCT USED FOR UNKNOWN INDICATION
     Dosage: UNK
     Route: 065
  2. CAFLAM [Suspect]
     Active Substance: DICLOFENAC POTASSIUM
     Indication: MYALGIA
     Dosage: 50 MG, QD
     Route: 048
     Dates: start: 20190515, end: 20190710

REACTIONS (7)
  - Eye oedema [Unknown]
  - Eyelid oedema [Unknown]
  - Rash [Recovering/Resolving]
  - Allergic reaction to excipient [Recovering/Resolving]
  - Oedema mouth [Unknown]
  - Swelling face [Recovering/Resolving]
  - Skin oedema [Unknown]

NARRATIVE: CASE EVENT DATE: 20190711
